FAERS Safety Report 7642071-5 (Version None)
Quarter: 2011Q3

REPORT INFORMATION
  Report Type: 
  Country: None (occurrence: None)
  Receive Date: 20110728
  Receipt Date: 20110715
  Transmission Date: 20111222
  Serious: Yes (Other)
  Sender: FDA-Public Use
  Company Number: ES-ELI_LILLY_AND_COMPANY-ES201107004397

PATIENT
  Sex: Female
  Weight: 56 kg

DRUGS (4)
  1. LOSARTAN POTASSIUM [Concomitant]
     Dosage: 2 DF, QD
     Route: 048
  2. NEXIUM [Concomitant]
     Indication: GASTRIC DISORDER
     Dosage: 1 DF, QD
     Route: 048
  3. FORTEO [Suspect]
     Indication: OSTEOPOROSIS
     Dosage: 20 UG, QD
     Route: 058
     Dates: start: 20110117, end: 20110705
  4. FUROSEMIDE [Concomitant]
     Indication: URINE OUTPUT
     Dosage: 0.5 DF, QD
     Route: 048

REACTIONS (1)
  - RENAL FAILURE [None]
